FAERS Safety Report 7767377-0 (Version None)
Quarter: 2011Q3

REPORT INFORMATION
  Report Type: 
  Country: None (occurrence: None)
  Receive Date: 20110922
  Receipt Date: 20101105
  Transmission Date: 20111222
  Serious: No
  Sender: FDA-Public Use
  Company Number: US-ASTRAZENECA-2008UW01153

PATIENT
  Age: 22 Year
  Sex: Female
  Weight: 131.1 kg

DRUGS (28)
  1. SEROQUEL [Suspect]
     Indication: INSOMNIA
     Dosage: 25 MG TO 200 MG
     Route: 048
     Dates: start: 20000101, end: 20060101
  2. PAROXETINE HYDROCHLORIDE [Concomitant]
  3. FLUCONAZOLE [Concomitant]
  4. SEROQUEL [Suspect]
     Dosage: 25-200 MG
     Route: 048
     Dates: start: 20010101, end: 20061201
  5. LEVOTHYROXINE SODIUM [Concomitant]
  6. LEXAPRO [Concomitant]
  7. NOVOLIN 70/30 [Concomitant]
  8. FLUOXETINE [Concomitant]
  9. LEVAQUIN [Concomitant]
  10. DOXYCYCLINE [Concomitant]
  11. SEROQUEL [Suspect]
     Indication: ANXIETY
     Dosage: 25 MG TO 200 MG
     Route: 048
     Dates: start: 20000101, end: 20060101
  12. STARLIX [Concomitant]
  13. MYCELEX [Concomitant]
  14. TRAZODONE HYDROCHLORIDE [Concomitant]
  15. ULTRACET [Concomitant]
  16. ZELNORM [Concomitant]
  17. CYCLOPHOSPHAMIDE [Concomitant]
  18. CLONAZEPAM [Concomitant]
  19. CIPROFLOXACIN [Concomitant]
  20. RANITIDINE [Concomitant]
  21. TOPAMAX [Concomitant]
  22. FUROSEMIDE [Concomitant]
  23. SEROQUEL [Suspect]
     Indication: DEPRESSION
     Dosage: 25 MG TO 200 MG
     Route: 048
     Dates: start: 20000101, end: 20060101
  24. SEROQUEL [Suspect]
     Dosage: 25-200 MG
     Route: 048
     Dates: start: 20010101, end: 20061201
  25. SEROQUEL [Suspect]
     Dosage: 25-200 MG
     Route: 048
     Dates: start: 20010101, end: 20061201
  26. LANTUS [Concomitant]
  27. WELLBUTRIN [Concomitant]
  28. EFFEXOR [Concomitant]

REACTIONS (4)
  - TYPE 2 DIABETES MELLITUS [None]
  - TYPE 1 DIABETES MELLITUS [None]
  - DIABETIC COMPLICATION [None]
  - SLEEP APNOEA SYNDROME [None]
